FAERS Safety Report 16005884 (Version 1)
Quarter: 2019Q1

REPORT INFORMATION
  Report Type: Spontaneous
  Country: US (occurrence: US)
  Receive Date: 20190130
  Receipt Date: 20190130
  Transmission Date: 20190418
  Serious: Yes (Other)
  Sender: FDA-Public Use
  Company Number: None

PATIENT
  Age: 88 Year
  Sex: Female
  Weight: 45.36 kg

DRUGS (9)
  1. ACEBUTOLOL [Concomitant]
     Active Substance: ACEBUTOLOL
  2. OMEPRAZOLE. [Concomitant]
     Active Substance: OMEPRAZOLE
  3. VIT B-12 [Concomitant]
  4. FLECAINIDE ACETATE. [Concomitant]
     Active Substance: FLECAINIDE ACETATE
  5. FUROSEMIDE. [Concomitant]
     Active Substance: FUROSEMIDE
  6. BIOTIN [Concomitant]
     Active Substance: BIOTIN
  7. LISINOPRIL. [Concomitant]
     Active Substance: LISINOPRIL
  8. DOXYCYCLINE HYCLATE 100MG CAP [Suspect]
     Active Substance: DOXYCYCLINE HYCLATE
     Indication: SKIN NEOPLASM EXCISION
     Dosage: ?          QUANTITY:100 MG MILLIGRAM(S);?
     Route: 048
     Dates: start: 20181211, end: 20181214
  9. POTASSIUM [Concomitant]
     Active Substance: POTASSIUM

REACTIONS (1)
  - Heart rate irregular [None]

NARRATIVE: CASE EVENT DATE: 20181214
